FAERS Safety Report 14572120 (Version 1)
Quarter: 2018Q1

REPORT INFORMATION
  Report Type: Spontaneous
  Country: US (occurrence: US)
  Receive Date: 20180226
  Receipt Date: 20180226
  Transmission Date: 20180509
  Serious: No
  Sender: FDA-Public Use
  Company Number: US-TEVA-2018-US-855229

PATIENT
  Age: 77 Year
  Sex: Female

DRUGS (1)
  1. CILOSTAZOL. [Suspect]
     Active Substance: CILOSTAZOL
     Route: 065

REACTIONS (4)
  - Palpitations [Unknown]
  - Peripheral swelling [Unknown]
  - Headache [Not Recovered/Not Resolved]
  - Diarrhoea [Unknown]
